FAERS Safety Report 25416233 (Version 1)
Quarter: 2025Q2

REPORT INFORMATION
  Report Type: Spontaneous
  Country: US (occurrence: US)
  Receive Date: 20250610
  Receipt Date: 20250610
  Transmission Date: 20250717
  Serious: No
  Sender: ELI LILLY AND COMPANY
  Company Number: US-ELI_LILLY_AND_COMPANY-US202506006682

PATIENT
  Age: 77 Year
  Sex: Male

DRUGS (4)
  1. HUMALOG [Suspect]
     Active Substance: INSULIN LISPRO
     Indication: Product used for unknown indication
     Dosage: 8 U, EACH MORNING
     Route: 058
  2. HUMALOG [Suspect]
     Active Substance: INSULIN LISPRO
     Indication: Product used for unknown indication
     Dosage: 8 U, EACH MORNING
     Route: 058
  3. HUMALOG [Suspect]
     Active Substance: INSULIN LISPRO
  4. HUMALOG [Suspect]
     Active Substance: INSULIN LISPRO

REACTIONS (3)
  - Hypoacusis [Unknown]
  - Stress [Unknown]
  - Visual impairment [Unknown]
